FAERS Safety Report 4561792-4 (Version None)
Quarter: 2005Q1

REPORT INFORMATION
  Report Type: 
  Country: None (occurrence: None)
  Receive Date: 20050125
  Receipt Date: 20050111
  Transmission Date: 20050727
  Serious: Yes (Hospitalization)
  Sender: FDA-Public Use
  Company Number: US012745

PATIENT
  Age: 29 Year
  Sex: Female
  Weight: 107.9561 kg

DRUGS (6)
  1. GABITRIL [Suspect]
     Indication: BIPOLAR DISORDER
     Dosage: 4 MG BID ORAL
     Route: 048
     Dates: start: 20040126, end: 20040209
  2. CELEXA [Suspect]
     Indication: DEPRESSION
     Dosage: 40 UNITS QHS ORAL
     Route: 048
     Dates: start: 20010101
  3. NEURONTIN [Suspect]
     Indication: BIPOLAR DISORDER
     Dosage: 300 MG ORAL
     Route: 048
     Dates: start: 20011030
  4. XANAX [Suspect]
     Indication: ANXIETY
     Dosage: 0.5 UNIT PRN ORAL
     Route: 048
     Dates: start: 20030908
  5. KLONOPIN [Suspect]
     Indication: ANXIETY
     Dosage: 0.5 UNIT BID ORAL
     Route: 048
     Dates: start: 20030101
  6. LAMICTAL [Suspect]
     Indication: BIPOLAR DISORDER
     Dosage: 150 UNIT QD ORAL
     Route: 048
     Dates: start: 20040106

REACTIONS (8)
  - APHASIA [None]
  - DIZZINESS [None]
  - DRUG INTERACTION [None]
  - DYSTONIA [None]
  - HALLUCINATION [None]
  - HYPOGLYCAEMIA [None]
  - OEDEMA PERIPHERAL [None]
  - VISION BLURRED [None]
